FAERS Safety Report 7354865-4 (Version None)
Quarter: 2011Q1

REPORT INFORMATION
  Report Type: 
  Country: None (occurrence: None)
  Receive Date: 20110316
  Receipt Date: 20110307
  Transmission Date: 20110831
  Serious: Yes (Other)
  Sender: FDA-Public Use
  Company Number: US-ABBOTT-09P-163-0591148-00

PATIENT
  Sex: Female
  Weight: 43.584 kg

DRUGS (10)
  1. HUMIRA [Suspect]
     Indication: CROHN'S DISEASE
     Route: 058
     Dates: start: 20071104, end: 20080101
  2. HUMIRA [Suspect]
     Dates: start: 20090401
  3. HUMIRA [Suspect]
     Dates: start: 20110225
  4. CLONIDINE [Concomitant]
     Indication: PRODUCT USED FOR UNKNOWN INDICATION
  5. CITRACEL [Concomitant]
     Indication: PRODUCT USED FOR UNKNOWN INDICATION
  6. NORVASC [Concomitant]
     Indication: PRODUCT USED FOR UNKNOWN INDICATION
  7. VITAMIN B-12 [Concomitant]
     Indication: PRODUCT USED FOR UNKNOWN INDICATION
  8. ATENOLOL [Concomitant]
     Indication: PRODUCT USED FOR UNKNOWN INDICATION
  9. FOSAMAX [Concomitant]
     Indication: PRODUCT USED FOR UNKNOWN INDICATION
  10. VITAMIN D [Concomitant]
     Indication: PRODUCT USED FOR UNKNOWN INDICATION

REACTIONS (11)
  - DRUG INEFFECTIVE [None]
  - FATIGUE [None]
  - INFLUENZA LIKE ILLNESS [None]
  - SNEEZING [None]
  - INJECTION SITE PAIN [None]
  - FUNGAL SKIN INFECTION [None]
  - INJECTION SITE HAEMATOMA [None]
  - FISTULA [None]
  - ABDOMINAL ABSCESS [None]
  - RHINORRHOEA [None]
  - UPPER RESPIRATORY TRACT INFECTION [None]
